FAERS Safety Report 7859593-4 (Version None)
Quarter: 2011Q4

REPORT INFORMATION
  Report Type: 
  Country: None (occurrence: None)
  Receive Date: 20111027
  Receipt Date: 20111024
  Transmission Date: 20120403
  Serious: Yes (Death)
  Sender: FDA-Public Use
  Company Number: GR-PFIZER INC-2011258766

PATIENT

DRUGS (1)
  1. TYGACIL [Suspect]

REACTIONS (1)
  - HEPATIC FAILURE [None]
